FAERS Safety Report 5122353-1 (Version None)
Quarter: 2006Q4

REPORT INFORMATION
  Report Type: 
  Country: None (occurrence: None)
  Receive Date: 20061004
  Receipt Date: 20060920
  Transmission Date: 20070319
  Serious: Yes (Other)
  Sender: FDA-Public Use
  Company Number: CLOF-10329

PATIENT
  Age: 56 Year
  Sex: Male

DRUGS (1)
  1. CLOFARABINE [Suspect]
     Indication: ACUTE LYMPHOCYTIC LEUKAEMIA
     Dosage: 40 MG/M2, UNK
     Dates: start: 20060920

REACTIONS (6)
  - BLAST CELL COUNT DECREASED [None]
  - BLOOD CREATININE DECREASED [None]
  - CAPILLARY LEAK SYNDROME [None]
  - DYSPNOEA [None]
  - FLUID OVERLOAD [None]
  - HYPOXIA [None]
